FAERS Safety Report 6104646-4 (Version None)
Quarter: 2009Q1

REPORT INFORMATION
  Report Type: 
  Country: None (occurrence: None)
  Receive Date: 20090303
  Receipt Date: 20090216
  Transmission Date: 20090719
  Serious: Yes (Hospitalization, Other)
  Sender: FDA-Public Use
  Company Number: 2009AL000921

PATIENT
  Sex: Female

DRUGS (2)
  1. FEVERALL [Suspect]
  2. ANALGESICS [Concomitant]

REACTIONS (4)
  - ACCIDENTAL OVERDOSE [None]
  - CHOLESTASIS [None]
  - HEPATIC NECROSIS [None]
  - LIVER INJURY [None]
